FAERS Safety Report 4457174-6 (Version None)
Quarter: 2004Q3

REPORT INFORMATION
  Report Type: 
  Country: None (occurrence: None)
  Receive Date: 20040922
  Receipt Date: 20040903
  Transmission Date: 20050211
  Serious: Yes (Hospitalization)
  Sender: FDA-Public Use
  Company Number: USA040670683

PATIENT
  Age: 84 Year
  Sex: Female
  Weight: 50 kg

DRUGS (7)
  1. FORTEO [Suspect]
     Indication: OSTEOPOROSIS
     Dosage: 20 UG DAY
     Dates: start: 20040227
  2. SYNTHROID (LEVOTHORIXINE SODIUM) [Concomitant]
  3. TOPROXL XL (METOPROLOL SUCCINATE0 [Concomitant]
  4. NEXIUM (ESOMEPRAZOLE MGANESIUM) [Concomitant]
  5. COZAAR [Concomitant]
  6. NTG(GLYCERYL TRINITRATE) [Concomitant]
  7. ACEBUTOLOL [Concomitant]

REACTIONS (12)
  - ANGINA PECTORIS [None]
  - ASTHENIA [None]
  - BLOOD PRESSURE DECREASED [None]
  - BRADYCARDIA [None]
  - CARDIAC PACEMAKER INSERTION [None]
  - DIZZINESS [None]
  - LETHARGY [None]
  - PHARMACEUTICAL PRODUCT COMPLAINT [None]
  - POST PROCEDURAL PAIN [None]
  - SYNCOPE [None]
  - TREATMENT NONCOMPLIANCE [None]
  - WEIGHT DECREASED [None]
